FAERS Safety Report 6408129-3 (Version None)
Quarter: 2009Q4

REPORT INFORMATION
  Report Type: 
  Country: None (occurrence: None)
  Receive Date: 20091019
  Receipt Date: 20091008
  Transmission Date: 20100525
  Serious: Yes (Other)
  Sender: FDA-Public Use
  Company Number: 09-001597

PATIENT

DRUGS (1)
  1. TACLONEX [Suspect]
     Dosage: TOPICAL
     Route: 061

REACTIONS (1)
  - CHORIORETINOPATHY [None]
